APPROVED DRUG PRODUCT: TAZAROTENE
Active Ingredient: TAZAROTENE
Strength: 0.1%
Dosage Form/Route: GEL;TOPICAL
Application: A213079 | Product #002 | TE Code: AB
Applicant: PADAGIS ISRAEL PHARMACEUTICALS LTD
Approved: Apr 25, 2023 | RLD: No | RS: No | Type: RX